FAERS Safety Report 11628393 (Version 1)
Quarter: 2015Q4

REPORT INFORMATION
  Report Type: Spontaneous
  Country: CH (occurrence: CH)
  Receive Date: 20151014
  Receipt Date: 20151014
  Transmission Date: 20160304
  Serious: Yes (Hospitalization)
  Sender: FDA-Public Use
  Company Number: PHHY2015CH123049

PATIENT
  Age: 87 Year
  Sex: Female

DRUGS (2)
  1. PREDNISONE. [Suspect]
     Active Substance: PREDNISONE
     Indication: MALIGNANT PLEURAL EFFUSION
     Dosage: 1 MG/KG, QD
     Route: 065
  2. CHLORAMBUCIL [Suspect]
     Active Substance: CHLORAMBUCIL
     Indication: MALIGNANT PLEURAL EFFUSION
     Dosage: 0.3 MG/KG, QD, 5 DAYS/MONTH
     Route: 065

REACTIONS (1)
  - Panniculitis [Unknown]
